FAERS Safety Report 9424792 (Version 1)
Quarter: 2013Q3

REPORT INFORMATION
  Report Type: Spontaneous
  Country: FR (occurrence: None)
  Receive Date: 20130724
  Receipt Date: 20130724
  Transmission Date: 20140515
  Serious: Yes (Hospitalization)
  Sender: FDA-Public Use
  Company Number: SYM-2013-06938

PATIENT
  Age: 36 Year
  Sex: Male
  Weight: 62 kg

DRUGS (3)
  1. EFUDIX [Suspect]
     Indication: HYPERKERATOSIS
     Dosage: 1 DOSAGE FORMS, 5 IN 1 WK
     Dates: start: 2011
  2. VFEND [Suspect]
     Indication: SPONDYLITIS
     Dosage: 3 IN 1 D, ORAL
     Route: 048
     Dates: end: 2005
  3. CANCIDAS [Suspect]
     Indication: CYSTIC FIBROSIS
     Dosage: 800 MG 1 IN 1 D, ORAL
     Route: 048
     Dates: end: 2005

REACTIONS (1)
  - Salivary gland cancer [None]
